FAERS Safety Report 9349299 (Version 2)
Quarter: 2013Q4

REPORT INFORMATION
  Report Type: Spontaneous
  Country: US (occurrence: US)
  Receive Date: 20130614
  Receipt Date: 20131226
  Transmission Date: 20140711
  Serious: No
  Sender: FDA-Public Use
  Company Number: US-B.I. PHARMACEUTICALS,INC./RIDGEFIELD-2013-BI-16557BP

PATIENT
  Sex: Male
  Weight: 78.93 kg

DRUGS (7)
  1. PRADAXA [Suspect]
     Indication: CEREBROVASCULAR ACCIDENT PROPHYLAXIS
     Dosage: 300 MG
     Route: 048
     Dates: start: 20110609, end: 20110621
  2. PRADAXA [Suspect]
     Indication: THROMBOSIS PROPHYLAXIS
  3. DILTIAZEM [Concomitant]
     Dosage: 80 MG
     Route: 048
  4. DIGOXIN [Concomitant]
     Dosage: 0.125 MG
     Route: 048
  5. LOPID [Concomitant]
     Dosage: 1200 MG
     Route: 048
  6. LORATADINE [Concomitant]
     Dosage: 10 MG
     Route: 048
  7. CLONAZEPAM [Concomitant]
     Dosage: 10 MG
     Route: 048

REACTIONS (2)
  - Gastrointestinal haemorrhage [Unknown]
  - Toxicity to various agents [Unknown]
